FAERS Safety Report 7959761-7 (Version None)
Quarter: 2011Q4

REPORT INFORMATION
  Report Type: 
  Country: None (occurrence: None)
  Receive Date: 20111206
  Receipt Date: 20111125
  Transmission Date: 20120403
  Serious: Yes (Other)
  Sender: FDA-Public Use
  Company Number: FI-GLAXOSMITHKLINE-B0766467A

PATIENT
  Sex: Female

DRUGS (6)
  1. LORAZEPAM [Concomitant]
     Indication: BIPOLAR DISORDER
     Dosage: 2.5MG PER DAY
     Route: 048
  2. CANDESARTAN CILEXETIL [Concomitant]
     Indication: BLOOD PRESSURE
     Dosage: 24MG PER DAY
     Route: 048
  3. NORVASC [Concomitant]
     Indication: BLOOD PRESSURE
     Dosage: 5MG PER DAY
     Route: 048
  4. SEROQUEL [Concomitant]
     Indication: BIPOLAR DISORDER
     Dosage: 200MG PER DAY
     Route: 048
  5. QUETIAPINE [Concomitant]
     Indication: BIPOLAR DISORDER
     Dosage: 150MG PER DAY
     Route: 048
  6. LAMICTAL [Suspect]
     Indication: BIPOLAR II DISORDER
     Route: 048
     Dates: start: 20110925, end: 20111121

REACTIONS (2)
  - EXTRAPYRAMIDAL DISORDER [None]
  - TREMOR [None]
